FAERS Safety Report 8936995 (Version 2)
Quarter: 2012Q4

REPORT INFORMATION
  Report Type: 
  Country: JP (occurrence: JP)
  Receive Date: 20121130
  Receipt Date: 20121220
  Transmission Date: 20130627
  Serious: Yes (Other)
  Sender: FDA-Public Use
  Company Number: JP-009507513-1211JPN010888

PATIENT
  Sex: Female

DRUGS (2)
  1. FAMOTIDINE [Suspect]
     Indication: PEPTIC ULCER
     Dosage: 20 UNK, UNK
     Route: 065
     Dates: start: 20061120
  2. FAMOTIDINE [Suspect]
     Dosage: 20 mg, qd
     Route: 048
     Dates: start: 201107

REACTIONS (2)
  - Gastritis erosive [Unknown]
  - Drug ineffective [Unknown]
